FAERS Safety Report 9158084 (Version 8)
Quarter: 2014Q2

REPORT INFORMATION
  Report Type: Spontaneous
  Country: US (occurrence: US)
  Receive Date: 20130312
  Receipt Date: 20140430
  Transmission Date: 20141212
  Serious: Yes (Hospitalization)
  Sender: FDA-Public Use
  Company Number: US-GLAXOSMITHKLINE-A1009750A

PATIENT
  Age: 48 Year
  Sex: Female
  Weight: 52 kg

DRUGS (3)
  1. FLOLAN [Suspect]
     Indication: COR PULMONALE CHRONIC
     Dosage: 31.5NGKM CONTINUOUS
     Route: 042
     Dates: start: 19990112
  2. REVATIO [Concomitant]
  3. WARFARIN [Concomitant]

REACTIONS (8)
  - Pulmonary arterial hypertension [Recovered/Resolved]
  - Staphylococcal infection [Unknown]
  - Catheter site infection [Recovered/Resolved]
  - Nosocomial infection [Recovered/Resolved]
  - Cardiac disorder [Recovered/Resolved]
  - Fluid retention [Recovered/Resolved]
  - Medical device complication [Recovered/Resolved]
  - Central venous catheterisation [Recovered/Resolved]
